FAERS Safety Report 7272191-9 (Version None)
Quarter: 2011Q1

REPORT INFORMATION
  Report Type: 
  Country: None (occurrence: None)
  Receive Date: 20110203
  Receipt Date: 20110121
  Transmission Date: 20110831
  Serious: Yes (Hospitalization, Other)
  Sender: FDA-Public Use
  Company Number: PHHY2009CA16639

PATIENT
  Sex: Female

DRUGS (17)
  1. RABEPRAZOLE SODIUM [Concomitant]
     Dosage: UNK/DAY
  2. METFORMIN HCL [Concomitant]
  3. COZAAR [Concomitant]
     Dosage: 50 ML
  4. METHOTREXATE [Concomitant]
     Indication: PSORIATIC ARTHROPATHY
  5. ACETAMINOPHEN [Concomitant]
     Dosage: UNK/DAY
  6. SANDOSTATIN LAR [Suspect]
     Dosage: 50 MG EVERY 4 WEEKS
     Route: 030
     Dates: start: 20001106
  7. ZANTAC [Concomitant]
     Dosage: 75 MG
     Route: 048
  8. POTASSIUM [Concomitant]
     Dosage: UNK/DAY
  9. SANDOSTATIN LAR [Suspect]
     Dosage: 50 MG, QMO
     Route: 030
  10. METOPROLOL [Concomitant]
  11. LOSARTAN POTASSIUM [Concomitant]
     Dosage: UNK/DAY
  12. LASIX [Concomitant]
  13. INSULIN [Concomitant]
  14. PARIET [Concomitant]
  15. FUROSEMIDE [Concomitant]
     Dosage: UNK/DAY
  16. SANDOSTATIN LAR [Suspect]
     Indication: CARCINOID TUMOUR
     Dosage: 40 MG EVERY 4 WEEKS
     Route: 030
     Dates: start: 19900401
  17. ASPIRIN [Concomitant]
     Dosage: UNK/DAY

REACTIONS (14)
  - INJURY [None]
  - OEDEMA PERIPHERAL [None]
  - DYSPNOEA [None]
  - FLATULENCE [None]
  - SCIATICA [None]
  - HAEMOGLOBIN DECREASED [None]
  - CONCUSSION [None]
  - BALANCE DISORDER [None]
  - DIZZINESS [None]
  - CARDIAC FAILURE [None]
  - FATIGUE [None]
  - FALL [None]
  - FLUSHING [None]
  - CORONARY ARTERY DISEASE [None]
